FAERS Safety Report 21978993 (Version 3)
Quarter: 2023Q2

REPORT INFORMATION
  Report Type: Spontaneous
  Country: CN (occurrence: CN)
  Receive Date: 20230210
  Receipt Date: 20230421
  Transmission Date: 20230722
  Serious: Yes (Other)
  Sender: FDA-Public Use
  Company Number: CN-BIOVITRUM-2023CN02231

PATIENT
  Age: 59 Year
  Sex: Female

DRUGS (3)
  1. DOPTELET [Suspect]
     Active Substance: AVATROMBOPAG MALEATE
     Indication: Thrombocytopenia
     Dosage: ONCE DAILY
     Route: 048
     Dates: start: 20220629, end: 20220703
  2. DOPTELET [Suspect]
     Active Substance: AVATROMBOPAG MALEATE
     Indication: Liver ablation
     Dosage: ONCE DAILY
     Route: 048
     Dates: start: 20220629, end: 20220703
  3. ENTECAVIR [Concomitant]
     Active Substance: ENTECAVIR
     Indication: Hepatitis B
     Dosage: 1 IN 1 DAY

REACTIONS (5)
  - Pneumothorax [Recovered/Resolved]
  - Dizziness [Recovered/Resolved]
  - Transaminases increased [Recovering/Resolving]
  - Pyrexia [Recovered/Resolved]
  - Pleural effusion [Unknown]

NARRATIVE: CASE EVENT DATE: 20220708
